FAERS Safety Report 26121303 (Version 1)
Quarter: 2025Q4

REPORT INFORMATION
  Report Type: Spontaneous
  Country: US (occurrence: US)
  Receive Date: 20251204
  Receipt Date: 20251204
  Transmission Date: 20260119
  Serious: Yes (Hospitalization)
  Sender: AMGEN
  Company Number: US-AMGEN-USASP2025235008

PATIENT
  Sex: Female

DRUGS (3)
  1. CINACALCET HYDROCHLORIDE [Suspect]
     Active Substance: CINACALCET HYDROCHLORIDE
     Indication: Hyperparathyroidism
     Dosage: UNK
     Route: 048
  2. CINACALCET HYDROCHLORIDE [Suspect]
     Active Substance: CINACALCET HYDROCHLORIDE
     Dosage: 4 MILLIGRAM, BID
     Route: 048
  3. Calcilos [Concomitant]
     Dosage: UNK (LOW CALCIUM FORMULA)

REACTIONS (6)
  - Hypophosphataemia [Unknown]
  - Blood alkaline phosphatase increased [Unknown]
  - Blood 25-hydroxycholecalciferol decreased [Unknown]
  - Feeding disorder [Unknown]
  - Drug ineffective for unapproved indication [Unknown]
  - Off label use [Unknown]
